FAERS Safety Report 14750841 (Version 6)
Quarter: 2018Q3

REPORT INFORMATION
  Report Type: Report from Study
  Country: CA (occurrence: CA)
  Receive Date: 20180412
  Receipt Date: 20180912
  Transmission Date: 20181010
  Serious: Yes (Hospitalization, Other)
  Sender: FDA-Public Use
  Company Number: CA-ROCHE-2092830

PATIENT
  Age: 51 Year
  Sex: Female
  Weight: 81.2 kg

DRUGS (12)
  1. PREDNISONE. [Concomitant]
     Active Substance: PREDNISONE
     Route: 065
     Dates: start: 20180320, end: 20180327
  2. PANTOPRAZOLE [Concomitant]
     Active Substance: PANTOPRAZOLE
     Route: 065
     Dates: start: 20180319
  3. PANTOPRAZOLE [Concomitant]
     Active Substance: PANTOPRAZOLE
     Route: 065
     Dates: start: 20180317, end: 20180318
  4. PREDNISONE. [Concomitant]
     Active Substance: PREDNISONE
     Route: 065
     Dates: start: 20180409, end: 20180416
  5. RO 6870810 (BET INHIBITOR) [Suspect]
     Active Substance: RO-6870810
     Indication: OVARIAN CANCER
     Dosage: ON 14/MAR/2018 AT 13:00, THE PATIENT RECEIVED THE LAST DOSE OF RO6870810 (0.65 MG/KG) PRIOR TO EVENT
     Route: 058
     Dates: start: 20180307
  6. ATEZOLIZUMAB. [Suspect]
     Active Substance: ATEZOLIZUMAB
     Indication: TRIPLE NEGATIVE BREAST CANCER
  7. PREDNISONE. [Concomitant]
     Active Substance: PREDNISONE
     Route: 065
     Dates: start: 20180404, end: 20180408
  8. ATEZOLIZUMAB. [Suspect]
     Active Substance: ATEZOLIZUMAB
     Indication: OVARIAN CANCER
     Dosage: ON 07/MAR/2018 AT 12:34, THE PATIENT RECEIVED THE LAST DOSE OF ATEZOLIZUMAB (1200 MG) PRIOR TO EVENT
     Route: 042
     Dates: start: 20180307
  9. RESTORALAX [Concomitant]
     Active Substance: POLYETHYLENE GLYCOL 3350
     Route: 065
     Dates: start: 20170516
  10. RO 6870810 (BET INHIBITOR) [Suspect]
     Active Substance: RO-6870810
     Indication: TRIPLE NEGATIVE BREAST CANCER
  11. ADVIL [Concomitant]
     Active Substance: IBUPROFEN
     Route: 065
     Dates: start: 20161015
  12. PREDNISONE. [Concomitant]
     Active Substance: PREDNISONE
     Route: 065
     Dates: start: 20180519, end: 20180519

REACTIONS (2)
  - Febrile neutropenia [Recovered/Resolved]
  - Systemic immune activation [Not Recovered/Not Resolved]

NARRATIVE: CASE EVENT DATE: 20180314
